FAERS Safety Report 6596310-2 (Version None)
Quarter: 2010Q1

REPORT INFORMATION
  Report Type: 
  Country: None (occurrence: None)
  Receive Date: 20100216
  Receipt Date: 20100201
  Transmission Date: 20100710
  Serious: Yes (Hospitalization)
  Sender: FDA-Public Use
  Company Number: KV200900665

PATIENT
  Age: 48 Year
  Sex: Female
  Weight: 60 kg

DRUGS (18)
  1. MORPHINE SULFATE [Suspect]
     Indication: PAIN
     Dosage: 30 MG, TID, ORAL
     Route: 048
     Dates: end: 20081024
  2. MORPHINE SULFATE [Suspect]
     Indication: PAIN
     Dosage: 15 MG, TID PRN, ORAL
     Route: 048
     Dates: start: 20081024, end: 20081123
  3. OXYCODONE HCL [Concomitant]
  4. METOPROLOL (METOPROLOL) [Concomitant]
  5. PRILOSEC /00661201/ (OMEPRAZOLE) [Concomitant]
  6. MIDORINE (MIDODRINE) [Concomitant]
  7. LEVOTHYROXINE SODIUM [Concomitant]
  8. GABAPENTIN [Concomitant]
  9. ESCITALOPRAM [Concomitant]
  10. IMITREX /01044801/ (SUMATRIPTAN) [Concomitant]
  11. ZOFRAN /00955301/ (ONDANSETRON) [Concomitant]
  12. XANAX [Concomitant]
  13. AMBIEN [Concomitant]
  14. ONDANSETRON [Concomitant]
  15. MIDRIN /00450801/ (DICHLORALPHENAZONE, ISOMETHEPTENE, PARACETAMOL) [Concomitant]
  16. LOPRESSOR [Concomitant]
  17. LORAZEPAM [Concomitant]
  18. SPIRONOLACTONE [Concomitant]

REACTIONS (27)
  - ABDOMINAL PAIN [None]
  - AGGRESSION [None]
  - AGITATION [None]
  - BACK PAIN [None]
  - CONFUSIONAL STATE [None]
  - DEHYDRATION [None]
  - DELIRIUM [None]
  - DEPRESSED LEVEL OF CONSCIOUSNESS [None]
  - DYSARTHRIA [None]
  - ENCEPHALOPATHY [None]
  - FATIGUE [None]
  - FLUID INTAKE REDUCED [None]
  - HYPOPHAGIA [None]
  - HYPOTENSION [None]
  - HYPOVOLAEMIA [None]
  - HYPOXIA [None]
  - INTERVERTEBRAL DISC DISORDER [None]
  - LETHARGY [None]
  - MENTAL STATUS CHANGES [None]
  - MUSCULOSKELETAL PAIN [None]
  - OVERDOSE [None]
  - PAIN IN EXTREMITY [None]
  - PRODUCT PACKAGING ISSUE [None]
  - SCIATICA [None]
  - STUPOR [None]
  - UNEVALUABLE EVENT [None]
  - UNRESPONSIVE TO STIMULI [None]
